FAERS Safety Report 6723299-5 (Version None)
Quarter: 2010Q2

REPORT INFORMATION
  Report Type: 
  Country: None (occurrence: None)
  Receive Date: 20100513
  Receipt Date: 20100513
  Transmission Date: 20101027
  Serious: Yes (Life-Threatening, Other)
  Sender: FDA-Public Use
  Company Number: None

PATIENT
  Age: 1 Year
  Sex: Male
  Weight: 9.9791 kg

DRUGS (2)
  1. CHILDREN'S TYLENOL  .16  ? [Suspect]
     Indication: PYREXIA
     Dosage: 1.6 EVER4 HRS AS NEEDS
     Dates: start: 20090101, end: 20100420
  2. CHILDREN'S MOTRIN [Suspect]
     Indication: GASTROENTERITIS
     Dosage: 1.875 ALTERNATED

REACTIONS (4)
  - HYPOPHAGIA [None]
  - INSOMNIA [None]
  - MALAISE [None]
  - WEIGHT DECREASED [None]
